FAERS Safety Report 10586925 (Version 1)
Quarter: 2014Q4

REPORT INFORMATION
  Report Type: Spontaneous
  Country: US (occurrence: None)
  Receive Date: 20141114
  Receipt Date: 20141114
  Transmission Date: 20150529
  Serious: No
  Sender: FDA-Public Use
  Company Number: None

PATIENT
  Age: 41 Year
  Sex: Female

DRUGS (1)
  1. LIDOCAINE/PRILOCAINE 2.5/2.5% FONGERA [Suspect]
     Active Substance: LIDOCAINE\PRILOCAINE
     Indication: LOCAL ANAESTHESIA
     Dosage: EVERY 2 HOURS APPLIED TO A SURFACE, USUALLY THE SKIIN
     Dates: start: 20141020, end: 20141027

REACTIONS (2)
  - Impaired healing [None]
  - Application site discolouration [None]

NARRATIVE: CASE EVENT DATE: 20141020
